FAERS Safety Report 18963613 (Version 1)
Quarter: 2021Q1

REPORT INFORMATION
  Report Type: Spontaneous
  Country: US (occurrence: US)
  Receive Date: 20210303
  Receipt Date: 20210303
  Transmission Date: 20210420
  Serious: Yes (Hospitalization)
  Sender: FDA-Public Use
  Company Number: None

PATIENT
  Age: 56 Year
  Sex: Female

DRUGS (20)
  1. VIT. D [Concomitant]
     Active Substance: VITAMIN D NOS
  2. PREDNISONE. [Concomitant]
     Active Substance: PREDNISONE
  3. POT CHLORIDE [Concomitant]
     Active Substance: POTASSIUM CHLORIDE
  4. DOXYCYCL HYC [Concomitant]
  5. LOSARTAN POT [Concomitant]
     Active Substance: LOSARTAN POTASSIUM
  6. IBANDRONATE [Concomitant]
     Active Substance: IBANDRONATE SODIUM
  7. SMZ/TMP DS [Concomitant]
     Active Substance: SULFAMETHOXAZOLE\TRIMETHOPRIM
  8. FORTEO [Suspect]
     Active Substance: TERIPARATIDE
     Indication: PRODUCT USED FOR UNKNOWN INDICATION
     Route: 058
     Dates: start: 20210111
  9. WIXELA INHUB [Concomitant]
     Active Substance: FLUTICASONE PROPIONATE\SALMETEROL XINAFOATE
  10. MUPIROCIN. [Concomitant]
     Active Substance: MUPIROCIN
  11. HYDROCO/APAP [Concomitant]
     Active Substance: ACETAMINOPHEN\HYDROCODONE
  12. CARISOPRODOL. [Concomitant]
     Active Substance: CARISOPRODOL
  13. MYCOPHENOLAT [Concomitant]
     Active Substance: MYCOPHENOLATE MOFETIL
  14. FUROSEMIDE. [Concomitant]
     Active Substance: FUROSEMIDE
  15. HYDROXYCHLOR [Concomitant]
     Active Substance: HYDROXYCHLOROQUINE
  16. ATOVAQUONE. [Concomitant]
     Active Substance: ATOVAQUONE
  17. ALBUTEROL. [Concomitant]
     Active Substance: ALBUTEROL
  18. AMLODIPINE [Concomitant]
     Active Substance: AMLODIPINE BESYLATE
  19. CLONIDINE. [Concomitant]
     Active Substance: CLONIDINE
  20. NITROFURANTN [Concomitant]
     Active Substance: NITROFURANTOIN

REACTIONS (1)
  - Hospitalisation [None]
